FAERS Safety Report 8003384-0 (Version None)
Quarter: 2011Q4

REPORT INFORMATION
  Report Type: 
  Country: None (occurrence: None)
  Receive Date: 20111222
  Receipt Date: 20111205
  Transmission Date: 20120403
  Serious: Yes (Other)
  Sender: FDA-Public Use
  Company Number: FR-PFIZER INC-K201100604

PATIENT
  Age: 73 Year
  Sex: Male

DRUGS (8)
  1. RAMIPRIL [Suspect]
     Dosage: 2.5 MG, 2X/DAY
     Route: 048
     Dates: start: 20110408, end: 20110426
  2. MACROGOL [Suspect]
     Dosage: 1 DF, 2X/DAY
     Route: 048
     Dates: start: 20110426, end: 20110427
  3. SIMVASTATIN [Concomitant]
     Dosage: UNK
     Dates: start: 20110331
  4. METFORMIN [Concomitant]
     Dosage: UNK
     Dates: start: 20110331
  5. NALOXONE HYDROCHLORIDE W/TILIDINE HYDROCHLO [Concomitant]
     Dosage: UNK
     Dates: start: 20110331
  6. VASOMOTAL [Suspect]
     Dosage: 16 MG, 2X/DAY
     Route: 048
     Dates: start: 20110419, end: 20110426
  7. ARIXTRA [Suspect]
     Dosage: 1.5 MG, 1X/DAY
     Route: 058
     Dates: start: 20110331, end: 20110427
  8. AGGRENOX [Concomitant]
     Dosage: UNK
     Dates: start: 20110331

REACTIONS (7)
  - PRURITUS [None]
  - BRONCHOSPASM [None]
  - OEDEMA MOUTH [None]
  - DERMATITIS ALLERGIC [None]
  - LIP SWELLING [None]
  - DYSPNOEA [None]
  - SPEECH DISORDER [None]
